FAERS Safety Report 19510098 (Version 1)
Quarter: 2021Q3

REPORT INFORMATION
  Report Type: Spontaneous
  Country: DK (occurrence: DK)
  Receive Date: 20210708
  Receipt Date: 20210708
  Transmission Date: 20211014
  Serious: Yes (Other)
  Sender: FDA-Public Use
  Company Number: DK-US-PROVELL PHARMACEUTICALS LLC-E2B_90084123

PATIENT
  Age: 55 Year
  Sex: Female
  Weight: 71 kg

DRUGS (2)
  1. TOILAX [Concomitant]
     Active Substance: BISACODYL
     Indication: CONSTIPATION
     Dates: start: 20200101
  2. EUTHYROX [Suspect]
     Active Substance: LEVOTHYROXINE SODIUM
     Indication: HYPOTHYROIDISM
     Dosage: STRENGTH: 100 MICROGRAM
     Route: 048
     Dates: start: 20210527, end: 20210610

REACTIONS (2)
  - Hypothyroidism [Recovering/Resolving]
  - Product quality issue [Recovered/Resolved]

NARRATIVE: CASE EVENT DATE: 20210527
